FAERS Safety Report 14799792 (Version 1)
Quarter: 2018Q2

REPORT INFORMATION
  Report Type: Spontaneous
  Country: JP (occurrence: JP)
  Receive Date: 20180424
  Receipt Date: 20180424
  Transmission Date: 20180711
  Serious: Yes (Hospitalization)
  Sender: FDA-Public Use
  Company Number: JP-JNJFOC-20180201850

PATIENT
  Age: 1 Year
  Sex: Male
  Weight: 8.9 kg

DRUGS (16)
  1. REMICADE [Suspect]
     Active Substance: INFLIXIMAB
     Indication: KAWASAKI^S DISEASE
     Route: 042
     Dates: start: 20180117, end: 20180117
  2. ASPIRIN. [Concomitant]
     Active Substance: ASPIRIN
     Route: 048
     Dates: start: 20180117, end: 20180123
  3. PREDONINE [Concomitant]
     Active Substance: PREDNISOLONE
     Indication: KAWASAKI^S DISEASE
     Route: 042
     Dates: start: 20180108
  4. PREDONINE [Concomitant]
     Active Substance: PREDNISOLONE
     Indication: KAWASAKI^S DISEASE
     Route: 042
     Dates: start: 20180201
  5. FAMOTIDINE. [Concomitant]
     Active Substance: FAMOTIDINE
     Route: 042
     Dates: start: 20180108
  6. FAMOTIDINE. [Concomitant]
     Active Substance: FAMOTIDINE
     Route: 048
     Dates: start: 20180114, end: 20180209
  7. PREDONINE [Concomitant]
     Active Substance: PREDNISOLONE
     Indication: KAWASAKI^S DISEASE
     Route: 048
     Dates: start: 20180118, end: 20180118
  8. PREDONINE [Concomitant]
     Active Substance: PREDNISOLONE
     Indication: KAWASAKI^S DISEASE
     Route: 048
  9. ASPIRIN. [Concomitant]
     Active Substance: ASPIRIN
     Route: 048
     Dates: start: 20180106
  10. PREDONINE [Concomitant]
     Active Substance: PREDNISOLONE
     Indication: KAWASAKI^S DISEASE
     Route: 042
     Dates: start: 20180112, end: 20180114
  11. PREDONINE [Concomitant]
     Active Substance: PREDNISOLONE
     Indication: KAWASAKI^S DISEASE
     Route: 042
     Dates: start: 20180124
  12. PREDONINE [Concomitant]
     Active Substance: PREDNISOLONE
     Indication: KAWASAKI^S DISEASE
     Route: 048
     Dates: start: 20180115, end: 20180117
  13. PREDONINE [Concomitant]
     Active Substance: PREDNISOLONE
     Indication: KAWASAKI^S DISEASE
     Route: 048
     Dates: start: 20180207, end: 20180209
  14. PREDONINE [Concomitant]
     Active Substance: PREDNISOLONE
     Indication: KAWASAKI^S DISEASE
     Route: 048
     Dates: start: 20180202
  15. KENKETU GLOVENIN-I [Concomitant]
     Active Substance: HUMAN IMMUNOGLOBULIN G
     Indication: KAWASAKI^S DISEASE
     Route: 041
     Dates: start: 20180106, end: 20180109
  16. PIPERACILLIN SODIUM [Concomitant]
     Active Substance: PIPERACILLIN SODIUM
     Route: 042
     Dates: start: 20180205, end: 20180209

REACTIONS (1)
  - Erythema multiforme [Recovered/Resolved]

NARRATIVE: CASE EVENT DATE: 20180123
